FAERS Safety Report 19119736 (Version 2)
Quarter: 2021Q3

REPORT INFORMATION
  Report Type: Report from Study
  Country: None (occurrence: BR)
  Receive Date: 20210412
  Receipt Date: 20210712
  Transmission Date: 20211014
  Serious: No
  Sender: FDA-Public Use
  Company Number: BR-ABBVIE-21K-020-3851546-00

PATIENT
  Age: 63 Year
  Sex: Female
  Weight: 66 kg

DRUGS (2)
  1. OMEPRAZOLE. [Concomitant]
     Active Substance: OMEPRAZOLE
     Indication: GASTRIC DISORDER
     Dosage: UNSPECIFIED DOSE, TABLET EVERY DAY
     Route: 048
  2. ABT?494 [Suspect]
     Active Substance: UPADACITINIB
     Indication: RHEUMATOID ARTHRITIS
     Dosage: UNSPECIFIED DOSE
     Route: 048

REACTIONS (13)
  - Arthritis [Recovering/Resolving]
  - Muscle spasms [Recovered/Resolved]
  - Arthropathy [Recovering/Resolving]
  - Poor quality sleep [Recovering/Resolving]
  - Headache [Recovered/Resolved]
  - Gastric disorder [Recovered/Resolved]
  - Peripheral swelling [Recovering/Resolving]
  - Paraesthesia [Recovered/Resolved]
  - Malaise [Recovered/Resolved]
  - Mobility decreased [Recovered/Resolved]
  - Hypotonia [Recovered/Resolved]
  - Hypotonia [Recovered/Resolved]
  - Skin disorder [Recovered/Resolved]

NARRATIVE: CASE EVENT DATE: 20210406
